FAERS Safety Report 23979152 (Version 12)
Quarter: 2025Q2

REPORT INFORMATION
  Report Type: Report from Study
  Country: US (occurrence: US)
  Receive Date: 20240615
  Receipt Date: 20250409
  Transmission Date: 20250716
  Serious: Yes (Hospitalization, Disabling, Other)
  Sender: ABBVIE
  Company Number: US-ABBVIE-5766138

PATIENT
  Age: 65 Year
  Sex: Male
  Weight: 79.378 kg

DRUGS (19)
  1. RINVOQ [Suspect]
     Active Substance: UPADACITINIB
     Indication: Rheumatoid arthritis
     Dosage: FORM STRENGTH:15 MG
     Route: 048
     Dates: start: 20221127, end: 20240501
  2. RINVOQ [Suspect]
     Active Substance: UPADACITINIB
     Indication: Rheumatoid arthritis
     Dosage: FORM STRENGTH:15 MG
     Route: 048
     Dates: start: 20240710, end: 20240904
  3. RINVOQ [Suspect]
     Active Substance: UPADACITINIB
     Indication: Rheumatoid arthritis
     Dosage: FORM STRENGTH:15 MG
     Route: 048
     Dates: start: 202405, end: 20240611
  4. RINVOQ [Suspect]
     Active Substance: UPADACITINIB
     Indication: Rheumatoid arthritis
     Dosage: FORM STRENGTH:15 MG
     Route: 048
     Dates: start: 20240911
  5. RINVOQ [Suspect]
     Active Substance: UPADACITINIB
     Indication: Rheumatoid arthritis
     Route: 048
  6. JARDIANCE [Concomitant]
     Active Substance: EMPAGLIFLOZIN
     Indication: Product used for unknown indication
  7. DULOXETINE [Concomitant]
     Active Substance: DULOXETINE
     Indication: Product used for unknown indication
  8. LEVOTHYROXINE [Concomitant]
     Active Substance: LEVOTHYROXINE
     Indication: Product used for unknown indication
  9. LISINOPRIL [Concomitant]
     Active Substance: LISINOPRIL
     Indication: Product used for unknown indication
  10. ATORVASTATIN [Concomitant]
     Active Substance: ATORVASTATIN
     Indication: Product used for unknown indication
  11. CYCLOBENZAPRINE [Concomitant]
     Active Substance: CYCLOBENZAPRINE
     Indication: Product used for unknown indication
  12. GABAPENTIN [Concomitant]
     Active Substance: GABAPENTIN
     Indication: Product used for unknown indication
  13. PANTOPRAZOLE [Concomitant]
     Active Substance: PANTOPRAZOLE
     Indication: Product used for unknown indication
  14. FOLIC ACID [Concomitant]
     Active Substance: FOLIC ACID
     Indication: Product used for unknown indication
  15. FOLIC ACID [Concomitant]
     Active Substance: FOLIC ACID
     Indication: Product used for unknown indication
  16. PREDNISONE [Concomitant]
     Active Substance: PREDNISONE
     Indication: Product used for unknown indication
     Dosage: 2 TABLETS
  17. PREDNISONE [Concomitant]
     Active Substance: PREDNISONE
     Indication: Product used for unknown indication
     Dosage: 4 TABLETS
  18. HYDROCODONE [Concomitant]
     Active Substance: HYDROCODONE
     Indication: Product used for unknown indication
     Dosage: 10/325
  19. GLYBURIDE\METFORMIN [Concomitant]
     Active Substance: GLYBURIDE\METFORMIN
     Indication: Product used for unknown indication

REACTIONS (15)
  - Road traffic accident [Recovering/Resolving]
  - Medical device removal [Recovering/Resolving]
  - Spinal operation [Unknown]
  - Spinal osteoarthritis [Unknown]
  - Intervertebral disc degeneration [Unknown]
  - Dental operation [Recovering/Resolving]
  - Jaw fracture [Recovering/Resolving]
  - Craniofacial fracture [Recovering/Resolving]
  - Tongue injury [Recovering/Resolving]
  - Oral surgery [Recovering/Resolving]
  - Disability [Recovering/Resolving]
  - Multiple injuries [Recovering/Resolving]
  - Memory impairment [Unknown]
  - Balance disorder [Unknown]
  - Craniocerebral injury [Unknown]

NARRATIVE: CASE EVENT DATE: 20240501
